FAERS Safety Report 5614071-8 (Version None)
Quarter: 2008Q1

REPORT INFORMATION
  Report Type: 
  Country: None (occurrence: None)
  Receive Date: 20080130
  Receipt Date: 20070616
  Transmission Date: 20080703
  Serious: No
  Sender: FDA-Public Use
  Company Number: NL01PV07.03774

PATIENT
  Age: 1 Day
  Sex: Male

DRUGS (1)
  1. PAROXETINE [Suspect]
     Dosage: 30 MG, QD TRANSPLACENTAL
     Route: 064

REACTIONS (8)
  - BODY TEMPERATURE FLUCTUATION [None]
  - CONVULSION NEONATAL [None]
  - DRUG WITHDRAWAL SYNDROME NEONATAL [None]
  - FLOPPY INFANT [None]
  - HYPERTONIA NEONATAL [None]
  - HYPOGLYCAEMIA NEONATAL [None]
  - NEONATAL RESPIRATORY DISTRESS SYNDROME [None]
  - TONIC CONVULSION [None]
